FAERS Safety Report 6408108-6 (Version None)
Quarter: 2009Q4

REPORT INFORMATION
  Report Type: 
  Country: None (occurrence: None)
  Receive Date: 20091016
  Receipt Date: 20091008
  Transmission Date: 20100525
  Serious: Yes (Other)
  Sender: FDA-Public Use
  Company Number: OMPQ-NO-0910L-0862

PATIENT
  Age: 58 Year
  Sex: Male

DRUGS (1)
  1. OMNIPAQUE 300 [Suspect]
     Indication: DRUG USE FOR UNKNOWN INDICATION
     Dosage: SINGLE DOSE

REACTIONS (3)
  - EXTRAVASATION [None]
  - GENERAL PHYSICAL HEALTH DETERIORATION [None]
  - SUBARACHNOID HAEMORRHAGE [None]
